FAERS Safety Report 19035788 (Version 1)
Quarter: 2021Q1

REPORT INFORMATION
  Report Type: Spontaneous
  Country: NL (occurrence: NL)
  Receive Date: 20210321
  Receipt Date: 20210321
  Transmission Date: 20210420
  Serious: Yes (Other)
  Sender: FDA-Public Use
  Company Number: NL-SA-2021SA093773

PATIENT
  Sex: Male
  Weight: 65 kg

DRUGS (2)
  1. DEXAMFETAMINE [Concomitant]
     Active Substance: DEXTROAMPHETAMINE
     Dosage: DOSE: TABLET, 5 MG (MILLIGRAM)
  2. IRBESARTAN. [Suspect]
     Active Substance: IRBESARTAN
     Indication: HYPERTENSION
     Dosage: 150 MG, QD
     Dates: start: 20210209, end: 20210301

REACTIONS (3)
  - Erectile dysfunction [Not Recovered/Not Resolved]
  - Ejaculation failure [Not Recovered/Not Resolved]
  - Anorgasmia [Not Recovered/Not Resolved]
